FAERS Safety Report 13974534 (Version 1)
Quarter: 2017Q3

REPORT INFORMATION
  Report Type: Spontaneous
  Country: US (occurrence: US)
  Receive Date: 20170915
  Receipt Date: 20170915
  Transmission Date: 20171128
  Serious: No
  Sender: FDA-Public Use
  Company Number: US-KOWA-17US001498

PATIENT

DRUGS (1)
  1. LIVALO [Suspect]
     Active Substance: PITAVASTATIN CALCIUM
     Indication: BLOOD CHOLESTEROL
     Dosage: 2 MG, QD
     Dates: start: 2015, end: 20170725

REACTIONS (4)
  - Alanine aminotransferase abnormal [Unknown]
  - Blood bilirubin abnormal [Unknown]
  - Aspartate aminotransferase abnormal [Unknown]
  - Jaundice [Unknown]

NARRATIVE: CASE EVENT DATE: 20170726
